FAERS Safety Report 22350687 (Version 2)
Quarter: 2023Q2

REPORT INFORMATION
  Report Type: Spontaneous
  Country: MX (occurrence: None)
  Receive Date: 20230522
  Receipt Date: 20230613
  Transmission Date: 20230722
  Serious: Yes (Other)
  Sender: FDA-Public Use
  Company Number: 2023A115295

PATIENT
  Age: 28331 Day
  Sex: Male
  Weight: 60 kg

DRUGS (4)
  1. ROFLUMILAST [Suspect]
     Active Substance: ROFLUMILAST
     Indication: Chronic obstructive pulmonary disease
     Route: 048
     Dates: start: 2018
  2. RAINBON [Concomitant]
     Indication: Chronic obstructive pulmonary disease
  3. CONBIVENT [Concomitant]
     Indication: Chronic obstructive pulmonary disease
  4. LOSARTAN [Concomitant]
     Active Substance: LOSARTAN
     Indication: Hypertension

REACTIONS (11)
  - Dyspnoea [Recovered/Resolved]
  - Cold sweat [Recovered/Resolved]
  - Anxiety [Recovered/Resolved]
  - Vision blurred [Recovering/Resolving]
  - Insomnia [Recovered/Resolved]
  - Decreased appetite [Recovered/Resolved]
  - Dizziness [Recovering/Resolving]
  - Headache [Recovered/Resolved]
  - Expired product administered [Unknown]
  - Chronic obstructive pulmonary disease [Unknown]
  - Incorrect dose administered [Unknown]

NARRATIVE: CASE EVENT DATE: 20230513
